FAERS Safety Report 5418886-0 (Version None)
Quarter: 2007Q3

REPORT INFORMATION
  Report Type: 
  Country: None (occurrence: None)
  Receive Date: 20070718
  Receipt Date: 20060720
  Transmission Date: 20080115
  Serious: Yes (Hospitalization, Other)
  Sender: FDA-Public Use
  Company Number: 2006091765

PATIENT
  Age: 60 Year
  Sex: Male
  Weight: 95.2554 kg

DRUGS (2)
  1. CELEBREX [Suspect]
     Indication: ANALGESIA
     Dosage: 400 MG (200 MG)
     Dates: start: 20000801, end: 20050101
  2. ACETYLSALICYLIC ACID SRT [Concomitant]

REACTIONS (1)
  - CEREBROVASCULAR ACCIDENT [None]
